FAERS Safety Report 24701496 (Version 1)
Quarter: 2024Q4

REPORT INFORMATION
  Report Type: Spontaneous
  Country: FR (occurrence: FR)
  Receive Date: 20241205
  Receipt Date: 20241205
  Transmission Date: 20250114
  Serious: Yes (Life-Threatening, Other)
  Sender: BAXTER
  Company Number: FR-BAXTER-2024BAX028893

PATIENT
  Sex: Female

DRUGS (1)
  1. TISSEEL (FACTOR XIII CONCENTRATE (HUMAN)\FIBRINOGEN HUMAN\THROMBIN HUM [Suspect]
     Active Substance: APROTININ\CALCIUM CHLORIDE\FACTOR XIII CONCENTRATE (HUMAN)\FIBRINOGEN HUMAN\THROMBIN
     Indication: Hereditary haemorrhagic telangiectasia
     Dosage: UNK
     Route: 065

REACTIONS (3)
  - Embolism [Unknown]
  - Embolic stroke [Unknown]
  - Angiopathy [Unknown]
